FAERS Safety Report 12285979 (Version 2)
Quarter: 2016Q3

REPORT INFORMATION
  Report Type: Spontaneous
  Country: US (occurrence: US)
  Receive Date: 20160420
  Receipt Date: 20160919
  Transmission Date: 20161109
  Serious: Yes (Death)
  Sender: FDA-Public Use
  Company Number: US-CELGENEUS-USA-2016041756

PATIENT
  Age: 75 Year
  Sex: Female

DRUGS (2)
  1. REVLIMID [Suspect]
     Active Substance: LENALIDOMIDE
     Indication: MYCOSIS FUNGOIDES
     Dosage: 10 MILLIGRAM
     Route: 048
     Dates: start: 201602
  2. ROMIDEPSIN [Concomitant]
     Active Substance: ROMIDEPSIN
     Indication: PRODUCT USED FOR UNKNOWN INDICATION
     Route: 065

REACTIONS (3)
  - Peripheral T-cell lymphoma unspecified [Fatal]
  - Respiratory failure [Fatal]
  - Emphysema [Fatal]

NARRATIVE: CASE EVENT DATE: 20160328
